FAERS Safety Report 6547299-3 (Version None)
Quarter: 2010Q1

REPORT INFORMATION
  Report Type: 
  Country: None (occurrence: None)
  Receive Date: 20100122
  Receipt Date: 20100119
  Transmission Date: 20100710
  Serious: Yes (Life-Threatening, Hospitalization)
  Sender: FDA-Public Use
  Company Number: SI-B.I. PHARMACEUTICALS,INC./RIDGEFIELD-2010-AP-00025AP

PATIENT
  Sex: Male

DRUGS (6)
  1. MICARDIS [Suspect]
     Indication: HYPERTENSION
     Dosage: 4/DAY
     Route: 048
     Dates: start: 20070808, end: 20091221
  2. BLOXAN [Concomitant]
     Indication: ARTERIOSCLEROSIS
     Dosage: 25MG/12H
     Route: 048
  3. RETAFER [Concomitant]
     Indication: ANAEMIA OF CHRONIC DISEASE
     Route: 048
  4. ATORIS [Concomitant]
     Indication: HYPERCHOLESTEROLAEMIA
     Dosage: 10 MG /DAY
     Route: 048
  5. MAREVAN [Concomitant]
     Indication: ATRIAL FIBRILLATION
     Route: 048
  6. ADALAT [Concomitant]
     Indication: HYPERTENSION
     Dosage: 30MG/DAY
     Route: 048

REACTIONS (1)
  - HYPERKALAEMIA [None]
